FAERS Safety Report 8127481-4 (Version None)
Quarter: 2012Q1

REPORT INFORMATION
  Report Type: 
  Country: None (occurrence: None)
  Receive Date: 20120210
  Receipt Date: 20120207
  Transmission Date: 20120608
  Serious: Yes (Death, Hospitalization)
  Sender: FDA-Public Use
  Company Number: FR-SANOFI-AVENTIS-2011SA064554

PATIENT
  Age: 51 Year
  Sex: Female

DRUGS (3)
  1. ACETAMINOPHEN AND TRAMADOL HCL [Suspect]
     Indication: RENAL COLIC
     Route: 048
     Dates: start: 20110216
  2. ALFUZOSIN HCL [Suspect]
     Indication: RENAL COLIC
     Route: 048
     Dates: start: 20110216
  3. ZOLPIDEM [Concomitant]

REACTIONS (7)
  - VOMITING [None]
  - VENTRICULAR FIBRILLATION [None]
  - HYPOKALAEMIA [None]
  - HYPOTENSION [None]
  - CARDIO-RESPIRATORY ARREST [None]
  - SHOCK [None]
  - COMA [None]
